FAERS Safety Report 19116062 (Version 1)
Quarter: 2021Q2

REPORT INFORMATION
  Report Type: Spontaneous
  Country: FR (occurrence: FR)
  Receive Date: 20210410
  Receipt Date: 20210410
  Transmission Date: 20210717
  Serious: Yes (Hospitalization)
  Sender: FDA-Public Use
  Company Number: FR-ROCHE-2807284

PATIENT
  Age: 64 Year
  Sex: Male

DRUGS (5)
  1. LANSOPRAZOLE. [Suspect]
     Active Substance: LANSOPRAZOLE
     Indication: INTESTINAL ULCER
     Route: 048
     Dates: start: 20210210, end: 20210223
  2. PROGRAF [Suspect]
     Active Substance: TACROLIMUS
     Indication: LIVER TRANSPLANT
     Route: 048
     Dates: start: 20210209
  3. ZYVOXID [Suspect]
     Active Substance: LINEZOLID
     Indication: LIVER TRANSPLANT
     Route: 048
     Dates: start: 20210209, end: 20210214
  4. BACTRIM [Suspect]
     Active Substance: SULFAMETHOXAZOLE\TRIMETHOPRIM
     Indication: LIVER TRANSPLANT
     Route: 048
     Dates: start: 20210214, end: 20210218
  5. CELLCEPT [Suspect]
     Active Substance: MYCOPHENOLATE MOFETIL\MYCOPHENOLATE MOFETIL HYDROCHLORIDE
     Indication: LIVER TRANSPLANT
     Route: 048
     Dates: start: 20210209, end: 20210227

REACTIONS (1)
  - Agranulocytosis [Not Recovered/Not Resolved]

NARRATIVE: CASE EVENT DATE: 20210215
